FAERS Safety Report 15041321 (Version 1)
Quarter: 2018Q2

REPORT INFORMATION
  Report Type: Spontaneous
  Country: US (occurrence: US)
  Receive Date: 20180621
  Receipt Date: 20180621
  Transmission Date: 20180711
  Serious: Yes (Hospitalization, Disabling, Other)
  Sender: FDA-Public Use
  Company Number: US-ZYDUS-020570

PATIENT
  Age: 57 Year
  Sex: Female

DRUGS (2)
  1. AMITRIPTYLINE [Suspect]
     Active Substance: AMITRIPTYLINE
     Indication: NEURALGIA
     Route: 065
  2. DULOXETINE/DULOXETINE HYDROCHLORIDE [Suspect]
     Active Substance: DULOXETINE HYDROCHLORIDE
     Indication: NEURALGIA
     Route: 065

REACTIONS (8)
  - Oxygen saturation decreased [Unknown]
  - Tachycardia [Unknown]
  - Respiratory failure [Unknown]
  - Rales [Unknown]
  - Chest X-ray abnormal [Unknown]
  - Dyspnoea exertional [Unknown]
  - Productive cough [Unknown]
  - Pulmonary eosinophilia [Unknown]
